FAERS Safety Report 23670221 (Version 1)
Quarter: 2024Q1

REPORT INFORMATION
  Report Type: Spontaneous
  Country: US (occurrence: US)
  Receive Date: 20240325
  Receipt Date: 20240325
  Transmission Date: 20240410
  Serious: Yes (Life-Threatening, Hospitalization, Other)
  Sender: FDA-Public Use
  Company Number: US-SUN PHARMACEUTICAL INDUSTRIES LTD-2024R1-437707

PATIENT
  Age: 60 Year
  Sex: Male

DRUGS (1)
  1. QUETIAPINE [Suspect]
     Active Substance: QUETIAPINE
     Indication: Adjuvant therapy
     Dosage: UNK
     Route: 065

REACTIONS (5)
  - Haemodynamic instability [Unknown]
  - Neuroleptic malignant syndrome [Unknown]
  - Tachycardia [Unknown]
  - Hypotension [Unknown]
  - Hyperpyrexia [Unknown]
